FAERS Safety Report 20356086 (Version 1)
Quarter: 2022Q1

REPORT INFORMATION
  Report Type: Spontaneous
  Country: US (occurrence: None)
  Receive Date: 20220119
  Receipt Date: 20220119
  Transmission Date: 20220424
  Serious: Yes (Hospitalization)
  Sender: FDA-Public Use
  Company Number: None

PATIENT
  Age: 33 Year
  Sex: Female

DRUGS (1)
  1. MAGNESIUM SULFATE [Suspect]
     Active Substance: MAGNESIUM SULFATE
     Indication: Labour induction
     Dosage: 2 G GRAM PER HOUR?
     Route: 041

REACTIONS (4)
  - Maternal exposure during pregnancy [None]
  - Foetal exposure during pregnancy [None]
  - Caesarean section [None]
  - Hypermagnesaemia [None]

NARRATIVE: CASE EVENT DATE: 20220109
